FAERS Safety Report 10363374 (Version 2)
Quarter: 2014Q3

REPORT INFORMATION
  Report Type: Spontaneous
  Country: US (occurrence: US)
  Receive Date: 20140805
  Receipt Date: 20140805
  Transmission Date: 20150326
  Serious: Yes (Hospitalization, Other)
  Sender: FDA-Public Use
  Company Number: US-009507513-2011SP019417

PATIENT
  Sex: Female
  Weight: 83.92 kg

DRUGS (2)
  1. SYNTHROID [Concomitant]
     Active Substance: LEVOTHYROXINE SODIUM
     Indication: HYPOTHYROIDISM
     Dosage: 0.88 MG, QD
  2. NUVARING [Suspect]
     Active Substance: ETHINYL ESTRADIOL\ETONOGESTREL
     Indication: CONTRACEPTION
     Dosage: UNK
     Route: 067
     Dates: start: 20060728, end: 200905

REACTIONS (8)
  - Tinea infection [Unknown]
  - Pulmonary embolism [Recovering/Resolving]
  - Acute sinusitis [Unknown]
  - Palpitations [Not Recovered/Not Resolved]
  - Atelectasis [Unknown]
  - Obesity [Unknown]
  - Extrasystoles [Unknown]
  - Chest pain [Unknown]

NARRATIVE: CASE EVENT DATE: 200709
